FAERS Safety Report 18920109 (Version 1)
Quarter: 2021Q1

REPORT INFORMATION
  Report Type: Spontaneous
  Country: US (occurrence: US)
  Receive Date: 20210222
  Receipt Date: 20210222
  Transmission Date: 20210420
  Serious: No
  Sender: FDA-Public Use
  Company Number: US-TEVA-2021-US-1880052

PATIENT

DRUGS (17)
  1. TRIMETHOPRIM. [Suspect]
     Active Substance: TRIMETHOPRIM
     Route: 065
  2. NABUMETONE. [Suspect]
     Active Substance: NABUMETONE
     Route: 065
  3. NICKEL [Suspect]
     Active Substance: NICKEL
     Route: 065
  4. NIACIN. [Suspect]
     Active Substance: NIACIN
     Route: 065
  5. PIOGLITAZONE. [Suspect]
     Active Substance: PIOGLITAZONE
     Route: 065
  6. SULFAMETHOXAZOLE [Suspect]
     Active Substance: SULFAMETHOXAZOLE
     Route: 065
  7. FESOTERODINE [Suspect]
     Active Substance: FESOTERODINE
     Route: 065
  8. PALLADIUM [Suspect]
     Active Substance: PALLADIUM
     Route: 065
  9. DICLOFENAC [Suspect]
     Active Substance: DICLOFENAC
     Route: 065
  10. COBALT [Suspect]
     Active Substance: COBALT
     Route: 065
  11. TRAMADOL. [Suspect]
     Active Substance: TRAMADOL
     Route: 065
  12. PSYLLIUM [Suspect]
     Active Substance: PLANTAGO SEED
     Route: 065
  13. COLESEVELAM [Suspect]
     Active Substance: COLESEVELAM
     Route: 065
  14. THIMEROSAL [Suspect]
     Active Substance: THIMEROSAL
     Route: 065
  15. KETOCONAZOLE. [Suspect]
     Active Substance: KETOCONAZOLE
     Route: 065
  16. OXYBUTYNIN. [Suspect]
     Active Substance: OXYBUTYNIN CHLORIDE
     Route: 065
  17. CODEINE [Suspect]
     Active Substance: CODEINE
     Route: 065

REACTIONS (2)
  - Adverse drug reaction [Unknown]
  - Drug hypersensitivity [Unknown]
